FAERS Safety Report 12732182 (Version 1)
Quarter: 2016Q3

REPORT INFORMATION
  Report Type: Spontaneous
  Country: US (occurrence: US)
  Receive Date: 20160909
  Receipt Date: 20160909
  Transmission Date: 20161109
  Serious: Yes (Other)
  Sender: FDA-Public Use
  Company Number: None

PATIENT
  Age: 59 Year
  Sex: Male
  Weight: 97.52 kg

DRUGS (2)
  1. ESCITALOPRAM OXALATE 20MG, 20 MG [Suspect]
     Active Substance: ESCITALOPRAM OXALATE
     Indication: MAJOR DEPRESSION
     Route: 048
     Dates: start: 20160729, end: 20160908
  2. ESCITALOPRAM OXALATE 20MG, 20 MG [Suspect]
     Active Substance: ESCITALOPRAM OXALATE
     Indication: OBSESSIVE-COMPULSIVE DISORDER
     Route: 048
     Dates: start: 20160729, end: 20160908

REACTIONS (5)
  - Aggression [None]
  - Depression [None]
  - Obsessive-compulsive disorder [None]
  - Nervousness [None]
  - Irritability [None]

NARRATIVE: CASE EVENT DATE: 20160815
